FAERS Safety Report 17606255 (Version 2)
Quarter: 2020Q2

REPORT INFORMATION
  Report Type: Spontaneous
  Country: US (occurrence: US)
  Receive Date: 20200331
  Receipt Date: 20200417
  Transmission Date: 20200713
  Serious: Yes (Hospitalization, Other)
  Sender: FDA-Public Use
  Company Number: US-AMGEN-USASP2020051101

PATIENT
  Age: 23 Year
  Sex: Female
  Weight: 74.1 kg

DRUGS (3)
  1. NPLATE [Suspect]
     Active Substance: ROMIPLOSTIM
     Dosage: 74.1 MICROGRAM, QWK
     Route: 065
     Dates: start: 20200312, end: 20200316
  2. NPLATE [Suspect]
     Active Substance: ROMIPLOSTIM
     Indication: IMMUNE THROMBOCYTOPENIA
     Dosage: UNK UNK, QWK
     Route: 065
     Dates: start: 20190517
  3. NPLATE [Suspect]
     Active Substance: ROMIPLOSTIM
     Dosage: 75.8 MICROGRAM, QWK
     Route: 065
     Dates: start: 20200306

REACTIONS (2)
  - Idiopathic intracranial hypertension [Unknown]
  - Papilloedema [Recovered/Resolved]

NARRATIVE: CASE EVENT DATE: 20200302
